FAERS Safety Report 7748508-5 (Version None)
Quarter: 2011Q3

REPORT INFORMATION
  Report Type: 
  Country: None (occurrence: None)
  Receive Date: 20110914
  Receipt Date: 20110906
  Transmission Date: 20111222
  Serious: No
  Sender: FDA-Public Use
  Company Number: US-BIOGENIDEC-2011BI009229

PATIENT
  Age: 49 Year
  Sex: Female

DRUGS (1)
  1. TYSABRI [Suspect]
     Indication: MULTIPLE SCLEROSIS
     Route: 042
     Dates: start: 20110118

REACTIONS (6)
  - SINUSITIS [None]
  - BALANCE DISORDER [None]
  - VEIN DISORDER [None]
  - BRONCHITIS [None]
  - FALL [None]
  - PNEUMONIA [None]
